FAERS Safety Report 19302403 (Version 2)
Quarter: 2021Q2

REPORT INFORMATION
  Report Type: Report from Study
  Country: US (occurrence: US)
  Receive Date: 20210525
  Receipt Date: 20210610
  Transmission Date: 20210717
  Serious: No
  Sender: FDA-Public Use
  Company Number: US-SA-2021SA132705

PATIENT
  Age: 45 Year
  Sex: Female

DRUGS (4)
  1. ZYRTEC [Concomitant]
     Active Substance: CETIRIZINE HYDROCHLORIDE
     Dosage: 2 DF
     Route: 065
     Dates: start: 20210420
  2. DUPILUMAB [Suspect]
     Active Substance: DUPILUMAB
     Dosage: 300 MG, QOW
     Route: 058
     Dates: start: 20210406
  3. DUPILUMAB [Suspect]
     Active Substance: DUPILUMAB
     Indication: DERMATITIS ATOPIC
     Dosage: 600 MG, 1X
     Route: 058
     Dates: start: 20210323, end: 20210323
  4. NA [Concomitant]
     Active Substance: SODIUM
     Dosage: UNK
     Route: 065

REACTIONS (8)
  - Wrong technique in product usage process [Unknown]
  - Injection site swelling [Not Recovered/Not Resolved]
  - Injection site haemorrhage [Unknown]
  - Injection site induration [Unknown]
  - Injection site scar [Recovered/Resolved]
  - Product storage error [Unknown]
  - Injection site erythema [Recovered/Resolved]
  - Injection site mass [Unknown]

NARRATIVE: CASE EVENT DATE: 2021
